FAERS Safety Report 10366535 (Version 3)
Quarter: 2014Q4

REPORT INFORMATION
  Report Type: Spontaneous
  Country: IT (occurrence: IT)
  Receive Date: 20140806
  Receipt Date: 20141125
  Transmission Date: 20150528
  Serious: Yes (Other)
  Sender: FDA-Public Use
  Company Number: IT-PFIZER INC-2014218321

PATIENT
  Age: 75 Year
  Sex: Female
  Weight: 82 kg

DRUGS (8)
  1. FELDENE [Suspect]
     Active Substance: PIROXICAM
     Indication: GROWING PAINS
     Dosage: 20 MG, AS NEEDED
     Route: 030
  2. TIOBEC [Concomitant]
     Dosage: UNK
     Route: 048
  3. GAVISCON [Concomitant]
     Active Substance: ALUMINUM HYDROXIDE\MAGNESIUM CARBONATE
     Indication: HIATUS HERNIA
     Dosage: UNK
     Route: 048
  4. MUSCORIL [Concomitant]
     Active Substance: THIOCOLCHICOSIDE
     Indication: GROWING PAINS
     Dosage: 4 MG, UNK
     Route: 030
  5. ELOPRAM [Interacting]
     Active Substance: CITALOPRAM HYDROBROMIDE
     Indication: ANXIETY
     Dosage: 20 MG, DAILY
     Route: 048
  6. LANSOPRAZOL TEVA [Concomitant]
     Indication: GASTRITIS
     Dosage: 30 MG, UNK
     Route: 048
  7. GABAPENTIN. [Concomitant]
     Active Substance: GABAPENTIN
     Indication: NEURALGIA
     Dosage: 600 MG, UNK
     Route: 048
  8. TIKLID [Interacting]
     Active Substance: TICLOPIDINE HYDROCHLORIDE
     Indication: CARDIOVASCULAR DISORDER
     Dosage: UNK
     Route: 048

REACTIONS (2)
  - Drug interaction [Recovering/Resolving]
  - Iron deficiency anaemia [Recovering/Resolving]

NARRATIVE: CASE EVENT DATE: 20140717
